FAERS Safety Report 16654118 (Version 1)
Quarter: 2019Q3

REPORT INFORMATION
  Report Type: Spontaneous
  Country: US (occurrence: US)
  Receive Date: 20190731
  Receipt Date: 20190731
  Transmission Date: 20191004
  Serious: No
  Sender: FDA-Public Use
  Company Number: US-SA-2019SA204246

PATIENT
  Age: 58 Year
  Sex: Male

DRUGS (9)
  1. AMLODIPINE BESYLATE. [Concomitant]
     Active Substance: AMLODIPINE BESYLATE
  2. MULTIVITAMIN (16) [Concomitant]
     Active Substance: VITAMINS
  3. BRILINTA [Concomitant]
     Active Substance: TICAGRELOR
  4. LIPITOR [Concomitant]
     Active Substance: ATORVASTATIN CALCIUM
  5. NAPROSYN [Concomitant]
     Active Substance: NAPROXEN
  6. VASCEPA [Concomitant]
     Active Substance: ICOSAPENT ETHYL
  7. METOPROLOL SUCCINATE. [Concomitant]
     Active Substance: METOPROLOL SUCCINATE
  8. LISINOPRIL. [Concomitant]
     Active Substance: LISINOPRIL
  9. DUPIXENT [Suspect]
     Active Substance: DUPILUMAB
     Indication: DERMATITIS ATOPIC
     Dosage: 1 DF, QOW
     Route: 058
     Dates: start: 20180601

REACTIONS (1)
  - Skin exfoliation [Unknown]

NARRATIVE: CASE EVENT DATE: 201907
